FAERS Safety Report 7216988-X (Version None)
Quarter: 2011Q1

REPORT INFORMATION
  Report Type: 
  Country: None (occurrence: None)
  Receive Date: 20110105
  Receipt Date: 20110105
  Transmission Date: 20110831
  Serious: Yes (Hospitalization)
  Sender: FDA-Public Use
  Company Number: None

PATIENT
  Age: 26 Year
  Sex: Male
  Weight: 51 kg

DRUGS (4)
  1. DIAMOX [Concomitant]
  2. METHOTREXATE [Concomitant]
  3. KINERET [Suspect]
     Indication: CHRONIC INFANTILE NEUROLOGICAL CUTANEOUS AND ARTICULAR SYNDROME
     Dosage: 2.01ML DAILY
     Dates: start: 20080918
  4. PREDNISONE [Concomitant]

REACTIONS (2)
  - HYDRONEPHROSIS [None]
  - NEPHROLITHIASIS [None]
